FAERS Safety Report 23869906 (Version 2)
Quarter: 2024Q2

REPORT INFORMATION
  Report Type: Report from Study
  Country: FR (occurrence: FR)
  Receive Date: 20240517
  Receipt Date: 20240524
  Transmission Date: 20240716
  Serious: Yes (Death)
  Sender: FDA-Public Use
  Company Number: FR-MIRATI-MT2024PM06710

PATIENT
  Sex: Male

DRUGS (1)
  1. KRAZATI [Suspect]
     Active Substance: ADAGRASIB
     Indication: Product used for unknown indication
     Dosage: 600 MG, BID
     Route: 048
     Dates: end: 20240122

REACTIONS (1)
  - Death [Fatal]

NARRATIVE: CASE EVENT DATE: 20240228
